FAERS Safety Report 6408355-3 (Version None)
Quarter: 2009Q4

REPORT INFORMATION
  Report Type: 
  Country: None (occurrence: None)
  Receive Date: 20091019
  Receipt Date: 20091013
  Transmission Date: 20100525
  Serious: Yes (Death)
  Sender: FDA-Public Use
  Company Number: OMPQ-PR-0909S-0774

PATIENT
  Age: 22 Year
  Sex: Male
  Weight: 72.1219 kg

DRUGS (1)
  1. OMNIPAQUE 300 [Suspect]
     Indication: CHOLECYSTECTOMY
     Dosage: 145 ML, SINGLE DOSE, I.V.
     Route: 042
     Dates: start: 20090827, end: 20090827

REACTIONS (11)
  - ABDOMINAL PAIN UPPER [None]
  - ANAPHYLACTIC REACTION [None]
  - APNOEA [None]
  - CONTRAST MEDIA REACTION [None]
  - DYSPNOEA [None]
  - HISTAMINE LEVEL INCREASED [None]
  - NAUSEA [None]
  - NECK PAIN [None]
  - PULSE ABSENT [None]
  - RETCHING [None]
  - TRYPTASE INCREASED [None]
